FAERS Safety Report 7506590-4 (Version None)
Quarter: 2011Q2

REPORT INFORMATION
  Report Type: 
  Country: None (occurrence: None)
  Receive Date: 20110526
  Receipt Date: 20110512
  Transmission Date: 20111010
  Serious: No
  Sender: FDA-Public Use
  Company Number: US-B.I. PHARMACEUTICALS,INC./RIDGEFIELD-2011-BP-12966BP

PATIENT
  Sex: Female

DRUGS (7)
  1. SPIRIVA [Suspect]
     Indication: EMPHYSEMA
     Route: 055
     Dates: start: 20080101
  2. LEVOXIN [Concomitant]
     Indication: THYROID DISORDER
     Dosage: 0.112 MG
     Route: 048
  3. ALLEGRA [Concomitant]
     Indication: HYPERSENSITIVITY
     Route: 048
  4. ATENOLOL [Concomitant]
     Indication: HYPERTENSION
     Dosage: 50 MG
     Route: 048
  5. CLARITIN [Concomitant]
     Indication: HYPERSENSITIVITY
     Route: 048
  6. NIFEDIPINE [Concomitant]
     Indication: HYPERTENSION
     Dosage: 30 MG
     Route: 048
  7. FORTEO [Concomitant]
     Indication: OSTEOPOROSIS
     Dosage: 20 MCG

REACTIONS (2)
  - TONGUE DISORDER [None]
  - GLOSSITIS [None]
